FAERS Safety Report 11938780 (Version 1)
Quarter: 2016Q1

REPORT INFORMATION
  Report Type: Spontaneous
  Country: KW (occurrence: KW)
  Receive Date: 20160122
  Receipt Date: 20160122
  Transmission Date: 20160526
  Serious: Yes (Hospitalization, Other)
  Sender: FDA-Public Use
  Company Number: KW-SUN PHARMACEUTICAL INDUSTRIES LTD-2016R1-110129

PATIENT
  Sex: Female

DRUGS (2)
  1. PROGESTERONE. [Suspect]
     Active Substance: PROGESTERONE
     Indication: PRODUCT USED FOR UNKNOWN INDICATION
     Dosage: UNK
     Route: 064
  2. METFORMIN [Suspect]
     Active Substance: METFORMIN HYDROCHLORIDE
     Indication: PRODUCT USED FOR UNKNOWN INDICATION
     Dosage: UNK
     Route: 064

REACTIONS (3)
  - Foetal growth restriction [Unknown]
  - Foetal exposure during pregnancy [Recovered/Resolved]
  - Respiratory distress [Recovering/Resolving]
